FAERS Safety Report 6817887-5 (Version None)
Quarter: 2010Q3

REPORT INFORMATION
  Report Type: 
  Country: None (occurrence: None)
  Receive Date: 20100706
  Receipt Date: 20090721
  Transmission Date: 20110219
  Serious: Yes (Other)
  Sender: FDA-Public Use
  Company Number: US-ASTRAZENECA-2008UW10854

PATIENT
  Age: 18145 Day
  Sex: Female
  Weight: 98.9 kg

DRUGS (12)
  1. SEROQUEL [Suspect]
     Indication: BIPOLAR DISORDER
     Route: 048
     Dates: start: 19990201
  2. SEROQUEL [Suspect]
     Route: 048
     Dates: start: 20020628
  3. LIPITOR [Concomitant]
     Dates: start: 20010207
  4. ZOLOFT [Concomitant]
     Dates: start: 20010207
  5. NITROGLYCERIN [Concomitant]
     Dates: start: 20010207
  6. SYNTHROID [Concomitant]
     Dates: start: 20010207
  7. ACCOLATE [Concomitant]
     Dates: start: 20010207
  8. TRAZODONE HYDROCHLORIDE [Concomitant]
     Dates: start: 20010207
  9. ISOSORBIDE [Concomitant]
     Dates: start: 20041021
  10. GEMFIBROZIL [Concomitant]
     Dates: start: 20041021
  11. DILTIAZEM [Concomitant]
     Dates: start: 20041021
  12. MECLIZINE [Concomitant]
     Indication: VERTIGO
     Dates: start: 20071108

REACTIONS (4)
  - ATAXIA [None]
  - DIABETES MELLITUS [None]
  - DIABETES MELLITUS INADEQUATE CONTROL [None]
  - DIABETIC NEUROPATHY [None]
